FAERS Safety Report 9415423 (Version 2)
Quarter: 2013Q3

REPORT INFORMATION
  Report Type: Spontaneous
  Country: BR (occurrence: BR)
  Receive Date: 20130723
  Receipt Date: 20130819
  Transmission Date: 20140515
  Serious: Yes (Other)
  Sender: FDA-Public Use
  Company Number: PHHY2013BR077451

PATIENT
  Age: 67 Year
  Sex: Female
  Weight: 80 kg

DRUGS (5)
  1. BUFFERIN [Suspect]
     Indication: CARDIOVASCULAR DISORDER
     Dosage: 81 MG, QD
     Route: 048
  2. INSULIN [Concomitant]
     Indication: DIABETES MELLITUS
     Dosage: UNK, QHS
  3. METFORMIN [Concomitant]
     Indication: DIABETES MELLITUS
     Dosage: 3 DF, QD
  4. ATENOLOL [Concomitant]
     Indication: HYPERTENSION
     Dosage: 1 DF, QD
     Route: 048
  5. DIOVAN [Concomitant]
     Indication: HYPERTENSION
     Dosage: 2 DF, QD

REACTIONS (1)
  - Dengue fever [Recovered/Resolved]
